FAERS Safety Report 7588510-X (Version None)
Quarter: 2011Q3

REPORT INFORMATION
  Report Type: 
  Country: None (occurrence: None)
  Receive Date: 20110705
  Receipt Date: 20110627
  Transmission Date: 20111222
  Serious: Yes (Other)
  Sender: FDA-Public Use
  Company Number: GB-PFIZER INC-2011143254

PATIENT
  Age: 48 Year
  Sex: Male

DRUGS (4)
  1. SUNITINIB MALATE [Suspect]
     Dosage: 25 MG, UNK
     Route: 048
     Dates: start: 20110329
  2. HALOPERIDOL [Concomitant]
     Indication: HICCUPS
     Dosage: 3 MG, AS NEEDED
     Route: 048
  3. MORPHINE SULFATE [Concomitant]
     Indication: PAIN
     Dosage: 20 MG, 2X/DAY
     Route: 048
  4. ORAMORPH SR [Concomitant]
     Indication: PAIN
     Dosage: 2.5 MG, AS NEEDED
     Route: 048

REACTIONS (4)
  - HAEMORRHAGE [None]
  - GASTROINTESTINAL MUCOSAL DISORDER [None]
  - HAEMOGLOBIN DECREASED [None]
  - THROMBOSIS [None]
